FAERS Safety Report 6692207-8 (Version None)
Quarter: 2010Q2

REPORT INFORMATION
  Report Type: 
  Country: None (occurrence: None)
  Receive Date: 20100422
  Receipt Date: 20091113
  Transmission Date: 20101027
  Serious: No
  Sender: FDA-Public Use
  Company Number: US-ASTRAZENECA-2009SE26400

PATIENT
  Age: 59 Year
  Sex: Male

DRUGS (5)
  1. TOPROL-XL [Suspect]
     Route: 048
  2. LISINOPRIL [Concomitant]
     Indication: HYPERTENSION
  3. CYMBALTA [Concomitant]
  4. JANUMET [Concomitant]
  5. METOPROLOL TARTRATE [Concomitant]
     Indication: HYPERTENSION

REACTIONS (3)
  - CHOKING [None]
  - COUGH [None]
  - GASTROOESOPHAGEAL REFLUX DISEASE [None]
